FAERS Safety Report 9890324 (Version 3)
Quarter: 2014Q2

REPORT INFORMATION
  Report Type: Spontaneous
  Country: JP (occurrence: JP)
  Receive Date: 20140212
  Receipt Date: 20140410
  Transmission Date: 20141212
  Serious: Yes (Other)
  Sender: FDA-Public Use
  Company Number: JP-MERCK-1402JPN003701

PATIENT
  Age: 79 Year
  Sex: Male

DRUGS (1)
  1. GLACTIV [Suspect]
     Indication: TYPE 2 DIABETES MELLITUS
     Dosage: 50 MG, QD (ONCE A DAY)(STRENGTH:12.5, 25, 50,100 MG)
     Route: 048
     Dates: start: 201310, end: 20140110

REACTIONS (1)
  - Interstitial lung disease [Recovered/Resolved]
